FAERS Safety Report 7142482-0 (Version None)
Quarter: 2010Q4

REPORT INFORMATION
  Report Type: 
  Country: None (occurrence: None)
  Receive Date: 20101207
  Receipt Date: 20101201
  Transmission Date: 20110411
  Serious: Yes (Other)
  Sender: FDA-Public Use
  Company Number: US-B.I. PHARMACEUTICALS,INC./RIDGEFIELD-2010-BP-13546BP

PATIENT
  Sex: Female

DRUGS (1)
  1. MIRAPEX [Suspect]
     Indication: RESTLESS LEGS SYNDROME

REACTIONS (8)
  - COMPULSIVE SHOPPING [None]
  - EMOTIONAL DISORDER [None]
  - FEELINGS OF WORTHLESSNESS [None]
  - INSOMNIA [None]
  - MUSCLE SPASMS [None]
  - NERVOUSNESS [None]
  - PATHOLOGICAL GAMBLING [None]
  - SUICIDAL IDEATION [None]
